FAERS Safety Report 7826002-0 (Version None)
Quarter: 2011Q4

REPORT INFORMATION
  Report Type: 
  Country: None (occurrence: None)
  Receive Date: 20111019
  Receipt Date: 20111004
  Transmission Date: 20120403
  Serious: Yes (Hospitalization, Other)
  Sender: FDA-Public Use
  Company Number: US-ROCHE-772264

PATIENT
  Sex: Female
  Weight: 56.75 kg

DRUGS (9)
  1. DAYPRO [Concomitant]
     Indication: ARTHRALGIA
     Dates: start: 19950927
  2. ERYTHROMYCIN [Concomitant]
     Indication: ACNE
  3. ORTHO CYCLEN-28 [Concomitant]
     Indication: CONTRACEPTION
  4. BREVOXYL GEL [Concomitant]
     Indication: ACNE
  5. MOTRIN [Concomitant]
  6. IBUPROFEN (ADVIL) [Concomitant]
  7. ACCUTANE [Suspect]
     Indication: ACNE
     Dosage: 40 MG PER DAY AND 80 MG PER DAY ALTERNATIVELY
     Route: 065
     Dates: start: 19930802, end: 19931118
  8. MARIJUANA [Concomitant]
  9. HYDROCODONE BITARTRATE [Concomitant]
     Indication: ABDOMINAL PAIN

REACTIONS (6)
  - EMOTIONAL DISTRESS [None]
  - IRRITABLE BOWEL SYNDROME [None]
  - CROHN'S DISEASE [None]
  - INTESTINAL OBSTRUCTION [None]
  - BLOOD CHOLESTEROL INCREASED [None]
  - INFLAMMATORY BOWEL DISEASE [None]
